FAERS Safety Report 4684365-1 (Version None)
Quarter: 2005Q2

REPORT INFORMATION
  Report Type: 
  Country: None (occurrence: None)
  Receive Date: 20050531
  Receipt Date: 20050204
  Transmission Date: 20051028
  Serious: Yes (Other)
  Sender: FDA-Public Use
  Company Number: USA040157443

PATIENT
  Age: 59 Year
  Sex: Male
  Weight: 93 kg

DRUGS (9)
  1. ZYPREXA [Suspect]
     Indication: BIPOLAR DISORDER
     Dosage: 30 MG DAY
     Dates: start: 20020501
  2. EYE DROPS (TETRYZOLINE HYDROCHLORIDE) [Concomitant]
  3. ZOLOFT [Concomitant]
  4. RANITIDINE [Concomitant]
  5. SEROQUEL [Concomitant]
  6. DOXYCYCLINE [Concomitant]
  7. HUMABID (GUAIFENESIN) [Concomitant]
  8. ZOCOR (SIMVASTATIN RATIOPHARM) [Concomitant]
  9. DEPAKOTE [Concomitant]

REACTIONS (20)
  - AGGRESSION [None]
  - AMNESIA [None]
  - ANOREXIA [None]
  - BASILAR MIGRAINE [None]
  - CONVULSION [None]
  - DIZZINESS [None]
  - DYSURIA [None]
  - FEELING ABNORMAL [None]
  - GLAUCOMA [None]
  - GLOSSODYNIA [None]
  - HEADACHE [None]
  - HYPERLIPIDAEMIA [None]
  - INSOMNIA [None]
  - PRESCRIBED OVERDOSE [None]
  - SINUSITIS [None]
  - SWOLLEN TONGUE [None]
  - SYNCOPE [None]
  - TONGUE BITING [None]
  - TREMOR [None]
  - WEIGHT INCREASED [None]
